FAERS Safety Report 9845552 (Version 1)
Quarter: 2013Q4

REPORT INFORMATION
  Report Type: Spontaneous
  Country: US (occurrence: None)
  Receive Date: 20131219
  Receipt Date: 20131219
  Transmission Date: 20140711
  Serious: Yes (Life-Threatening)
  Sender: FDA-Public Use
  Company Number: 163-20785-13092187

PATIENT
  Age: 49 Year
  Sex: Female
  Weight: 65.8 kg

DRUGS (9)
  1. THALIDOMIDE [Suspect]
     Indication: PLASMA CELL MYELOMA
     Route: 048
     Dates: start: 200605
  2. PROTONIX DR (PANTOPRAZOLE (TABLETS) [Concomitant]
  3. DEXAMETHASONE (DEXAMETHASONE) [Concomitant]
  4. ZOMETA (ZOLEDRRONIC ACID) [Concomitant]
  5. FENTANYL (FENTANYL) [Concomitant]
  6. PROCHLORPERAZINE (PROCHLORPERAZINE) [Concomitant]
  7. WARFARIN SODIUM (WARFARIN SODIUM) [Concomitant]
  8. VELCADE (BORTEZOMIB) [Concomitant]
  9. ATIVAN (LORAZEPAM) TABLETS [Concomitant]

REACTIONS (1)
  - Pulmonary embolism [None]
